FAERS Safety Report 11104344 (Version 4)
Quarter: 2015Q2

REPORT INFORMATION
  Report Type: Report from Study
  Country: JP (occurrence: JP)
  Receive Date: 20150511
  Receipt Date: 20150611
  Transmission Date: 20150821
  Serious: Yes (Other)
  Sender: FDA-Public Use
  Company Number: JP-PFIZER INC-2015155120

PATIENT
  Age: 81 Year
  Sex: Male
  Weight: 80 kg

DRUGS (15)
  1. XALKORI [Suspect]
     Active Substance: CRIZOTINIB
     Dosage: 250 MG, 2X/DAY (500 MG DAILY)
     Route: 048
     Dates: start: 20130226, end: 20130228
  2. ACECOL [Concomitant]
     Active Substance: TEMOCAPRIL HYDROCHLORIDE
     Dosage: 2 MG, 1X/DAY
     Route: 048
  3. MUCOSOLVAN L [Concomitant]
     Active Substance: AMBROXOL HYDROCHLORIDE
     Dosage: 45 MG, 1X/DAY
     Route: 048
  4. URIEF [Concomitant]
     Active Substance: SILODOSIN
     Dosage: 4 MG, 2X/DAY
     Route: 048
  5. AVOLVE [Concomitant]
     Active Substance: DUTASTERIDE
     Dosage: 0.5 MG, 1X/DAY
     Route: 048
  6. LIPOVAS /00848101/ [Concomitant]
     Active Substance: SIMVASTATIN
     Dosage: 5 MG, 1X/DAY
     Route: 048
  7. XALKORI [Suspect]
     Active Substance: CRIZOTINIB
     Indication: NON-SMALL CELL LUNG CANCER
     Dosage: 250 MG, 2X/DAY
     Route: 048
     Dates: start: 20130131, end: 20130204
  8. BAYASPIRIN [Concomitant]
     Active Substance: ASPIRIN
     Dosage: 100 MG, 1X/DAY
     Route: 048
  9. XALKORI [Suspect]
     Active Substance: CRIZOTINIB
     Dosage: 250 MG, DAILY
     Route: 048
     Dates: start: 20130218, end: 20130225
  10. XALKORI [Suspect]
     Active Substance: CRIZOTINIB
     Dosage: 250 MG, DAILY
     Route: 048
     Dates: start: 20130312, end: 20130315
  11. ALOSITOL [Concomitant]
     Active Substance: ALLOPURINOL
     Dosage: 100 MG, 2X/DAY
     Route: 048
  12. TAKEPRON OD [Concomitant]
     Active Substance: LANSOPRAZOLE
     Dosage: 15 MG, 1X/DAY
     Route: 048
  13. ADALAT CC [Concomitant]
     Active Substance: NIFEDIPINE
     Dosage: 20 MG, 1X/DAY
     Route: 048
  14. SIGMART [Concomitant]
     Active Substance: NICORANDIL
     Dosage: 10 MG, 2X/DAY
     Route: 048
  15. LAXOBERON [Concomitant]
     Active Substance: SODIUM PICOSULFATE
     Dosage: 10 ML, AS NEEDED
     Route: 048
     Dates: start: 20130202, end: 20130202

REACTIONS (2)
  - Acute kidney injury [Recovered/Resolved]
  - Cardiac failure congestive [Recovered/Resolved]

NARRATIVE: CASE EVENT DATE: 20130204
